FAERS Safety Report 11478097 (Version 1)
Quarter: 2015Q3

REPORT INFORMATION
  Report Type: Spontaneous
  Country: US (occurrence: US)
  Receive Date: 20150909
  Receipt Date: 20150909
  Transmission Date: 20151125
  Serious: Yes (Other)
  Sender: FDA-Public Use
  Company Number: US-SA-2015SA134082

PATIENT
  Age: 74 Year
  Sex: Female

DRUGS (1)
  1. RENVELA [Suspect]
     Active Substance: SEVELAMER CARBONATE
     Route: 065
     Dates: start: 2013

REACTIONS (1)
  - Cerebrovascular accident [Not Recovered/Not Resolved]
